FAERS Safety Report 6295387-1 (Version None)
Quarter: 2009Q3

REPORT INFORMATION
  Report Type: 
  Country: None (occurrence: None)
  Receive Date: 20090803
  Receipt Date: 20090728
  Transmission Date: 20100115
  Serious: Yes (Other)
  Sender: FDA-Public Use
  Company Number: US-SANOFI-SYNTHELABO-A03200902374

PATIENT
  Sex: Male
  Weight: 77.1 kg

DRUGS (9)
  1. COREG [Suspect]
     Indication: CARDIAC DISORDER
     Route: 048
     Dates: start: 20050101, end: 20090301
  2. COREG [Suspect]
     Route: 048
     Dates: start: 20090301
  3. ACCUPRIL [Suspect]
     Indication: CARDIAC DISORDER
     Route: 048
     Dates: start: 20050101, end: 20090301
  4. ACCUPRIL [Suspect]
     Route: 048
     Dates: start: 20090301
  5. PLAVIX [Suspect]
     Indication: STENT PLACEMENT
     Route: 048
     Dates: start: 20050315, end: 20090310
  6. PLAVIX [Suspect]
     Route: 048
     Dates: start: 20090313
  7. ALL OTHER THERAPEUTIC PRODUCTS [Concomitant]
     Indication: BLOOD CHOLESTEROL
     Route: 065
  8. LIPITOR [Concomitant]
     Indication: BLOOD CHOLESTEROL
     Route: 065
  9. ASPIRIN [Concomitant]
     Dosage: UNK
     Route: 048

REACTIONS (4)
  - CONJUNCTIVITIS [None]
  - FATIGUE [None]
  - TRAUMATIC HAEMATOMA [None]
  - VASCULAR OCCLUSION [None]
